FAERS Safety Report 7609057-8 (Version None)
Quarter: 2011Q3

REPORT INFORMATION
  Report Type: 
  Country: None (occurrence: None)
  Receive Date: 20110714
  Receipt Date: 20110707
  Transmission Date: 20111222
  Serious: Yes (Death, Hospitalization)
  Sender: FDA-Public Use
  Company Number: HU-ELI_LILLY_AND_COMPANY-10-11-00105

PATIENT
  Sex: Male
  Weight: 78 kg

DRUGS (9)
  1. FOLIC ACID [Concomitant]
     Indication: PROPHYLAXIS
  2. MEDROL [Concomitant]
     Indication: PROPHYLAXIS
  3. NEUPOGEN [Concomitant]
     Indication: WHITE BLOOD CELL COUNT DECREASED
     Dosage: UNK, UNK
     Dates: start: 20100501
  4. NAVOBAN [Concomitant]
     Indication: PROPHYLAXIS
  5. CISPLATIN [Suspect]
     Indication: NON-SMALL CELL LUNG CANCER
     Dosage: 135 MG, WEEKLY (1/W)
     Route: 042
     Dates: start: 20100511
  6. PEMETREXED [Suspect]
     Indication: NON-SMALL CELL LUNG CANCER
     Dosage: 900 MG, WEEKLY (1/W)
     Route: 042
     Dates: start: 20100511
  7. NECITUMUMAB (11F8) (LY3012211) [Suspect]
     Indication: NON-SMALL CELL LUNG CANCER
     Dosage: 800 MG, UNK
     Route: 042
     Dates: start: 20100511
  8. VITAMIN B-12 [Concomitant]
     Indication: PROPHYLAXIS
  9. EMETRON [Concomitant]
     Indication: PROPHYLAXIS

REACTIONS (2)
  - DEATH [None]
  - ASTHENIA [None]
